FAERS Safety Report 17462366 (Version 2)
Quarter: 2020Q1

REPORT INFORMATION
  Report Type: Spontaneous
  Country: US (occurrence: US)
  Receive Date: 20200226
  Receipt Date: 20200303
  Transmission Date: 20200409
  Serious: Yes (Other)
  Sender: FDA-Public Use
  Company Number: US-PFIZER INC-2020084975

PATIENT
  Age: 74 Year
  Sex: Female

DRUGS (1)
  1. XELJANZ XR [Suspect]
     Active Substance: TOFACITINIB CITRATE
     Dosage: 11 MG, UNK

REACTIONS (6)
  - Systemic lupus erythematosus [Unknown]
  - Neoplasm malignant [Unknown]
  - Autoimmune disorder [Unknown]
  - Rheumatoid arthritis [Unknown]
  - Haemorrhage [Unknown]
  - Malaise [Unknown]
